FAERS Safety Report 12654846 (Version 1)
Quarter: 2016Q3

REPORT INFORMATION
  Report Type: Spontaneous
  Country: IN (occurrence: IN)
  Receive Date: 20160816
  Receipt Date: 20160816
  Transmission Date: 20161109
  Serious: Yes (Life-Threatening, Hospitalization)
  Sender: FDA-Public Use
  Company Number: IN-GLAXOSMITHKLINE-IN2016GSK116779

PATIENT
  Age: 45 Year
  Sex: Female

DRUGS (1)
  1. CEFTUM [Suspect]
     Active Substance: CEFUROXIME
     Indication: CELLULITIS
     Dosage: 500 MG, BID
     Route: 048
     Dates: start: 20160730, end: 20160802

REACTIONS (1)
  - Rash [Recovered/Resolved]
